FAERS Safety Report 5001921-1 (Version None)
Quarter: 2006Q2

REPORT INFORMATION
  Report Type: 
  Country: None (occurrence: None)
  Receive Date: 20060515
  Receipt Date: 20050930
  Transmission Date: 20061013
  Serious: Yes (Hospitalization)
  Sender: FDA-Public Use
  Company Number: US-MERCK-0510USA01350

PATIENT
  Age: 46 Year
  Sex: Female
  Weight: 84 kg

DRUGS (1)
  1. VIOXX [Suspect]
     Indication: ARTHRALGIA
     Route: 048
     Dates: start: 19990501, end: 20040930

REACTIONS (33)
  - ABDOMINAL PAIN [None]
  - ACUTE MYOCARDIAL INFARCTION [None]
  - ANAEMIA OF CHRONIC DISEASE [None]
  - ANGINA PECTORIS [None]
  - ANGINA UNSTABLE [None]
  - ANXIETY [None]
  - BACTERAEMIA [None]
  - CARDIAC FAILURE [None]
  - CATHETER RELATED INFECTION [None]
  - CATHETER SEPSIS [None]
  - CEREBROVASCULAR ACCIDENT [None]
  - CHEST PAIN [None]
  - CHOLECYSTITIS CHRONIC [None]
  - CORONARY ARTERY DISEASE [None]
  - DEPRESSION [None]
  - ENTEROCOCCAL SEPSIS [None]
  - HYPERTENSION [None]
  - HYPOKALAEMIA [None]
  - HYPOXIA [None]
  - METABOLIC ACIDOSIS [None]
  - MYOCARDIAL ISCHAEMIA [None]
  - NAUSEA [None]
  - OBESITY [None]
  - OVERDOSE [None]
  - PULMONARY OEDEMA [None]
  - RENAL FAILURE [None]
  - RENAL FAILURE ACUTE [None]
  - RENAL FAILURE CHRONIC [None]
  - STAPHYLOCOCCAL INFECTION [None]
  - STAPHYLOCOCCAL SEPSIS [None]
  - VENOUS STENOSIS [None]
  - VENOUS THROMBOSIS [None]
  - VOMITING [None]
